FAERS Safety Report 16420349 (Version 1)
Quarter: 2019Q2

REPORT INFORMATION
  Report Type: Spontaneous
  Country: US (occurrence: US)
  Receive Date: 20190506
  Receipt Date: 20190506
  Transmission Date: 20190711
  Serious: Yes (Hospitalization)
  Sender: FDA-Public Use
  Company Number: None

PATIENT
  Age: 59 Year
  Sex: Female

DRUGS (17)
  1. GABAPENTIN. [Concomitant]
     Active Substance: GABAPENTIN
  2. BIOTIN [Concomitant]
     Active Substance: BIOTIN
  3. NEURONTIN [Concomitant]
     Active Substance: GABAPENTIN
  4. FLUNISOLIDE. [Concomitant]
     Active Substance: FLUNISOLIDE
  5. VITAMIN B12 [Concomitant]
     Active Substance: CYANOCOBALAMIN
  6. LEXAPRO [Concomitant]
     Active Substance: ESCITALOPRAM OXALATE
  7. CALCIUM CIT [Concomitant]
  8. DOXEPIN  HCL [Concomitant]
     Active Substance: DOXEPIN HYDROCHLORIDE
  9. FOLIC ACID. [Concomitant]
     Active Substance: FOLIC ACID
  10. ASPIRIN. [Concomitant]
     Active Substance: ASPIRIN
  11. NASONEX [Concomitant]
     Active Substance: MOMETASONE FUROATE
  12. VITAMIN D3 [Concomitant]
     Active Substance: CHOLECALCIFEROL
  13. CELEBREX [Concomitant]
     Active Substance: CELECOXIB
  14. FISH OIL [Concomitant]
     Active Substance: FISH OIL
  15. HUMIRA [Suspect]
     Active Substance: ADALIMUMAB
     Indication: RHEUMATOID ARTHRITIS
     Route: 058
     Dates: start: 20160827
  16. METHOTREXATE. [Concomitant]
     Active Substance: METHOTREXATE
  17. MULTIVITAMIN [Concomitant]
     Active Substance: VITAMINS

REACTIONS (1)
  - Hip surgery [None]

NARRATIVE: CASE EVENT DATE: 201810
